FAERS Safety Report 4394967-8 (Version None)
Quarter: 2004Q3

REPORT INFORMATION
  Report Type: 
  Country: None (occurrence: None)
  Receive Date: 20040712
  Receipt Date: 20040701
  Transmission Date: 20050211
  Serious: Yes (Hospitalization)
  Sender: FDA-Public Use
  Company Number: PHEH2004US07106

PATIENT
  Age: 65 Year
  Sex: Female

DRUGS (8)
  1. FORADIL [Suspect]
     Indication: ASTHMA
  2. NORVASC [Concomitant]
  3. VIOXX [Concomitant]
  4. NEXIUM [Concomitant]
  5. SINGULAIR ^DIECKMANN^ [Concomitant]
  6. THEOPHYLLINE [Concomitant]
  7. ADVAIR DISKUS 100/50 [Concomitant]
  8. ZOCOR [Concomitant]

REACTIONS (4)
  - CARDIAC PACEMAKER INSERTION [None]
  - CATHETERISATION CARDIAC [None]
  - ELECTROCARDIOGRAM QT PROLONGED [None]
  - VENTRICULAR FIBRILLATION [None]
